FAERS Safety Report 11583642 (Version 1)
Quarter: 2015Q4

REPORT INFORMATION
  Report Type: Other
  Country: JP (occurrence: JP)
  Receive Date: 20151001
  Receipt Date: 20151001
  Transmission Date: 20160304
  Serious: Yes (Life-Threatening, Hospitalization)
  Sender: FDA-Public Use
  Company Number: JP-MUNDIPHARMA DS AND PHARMACOVIGILANCE-GBR-2015-0029565

PATIENT
  Age: 49 Year
  Sex: Female

DRUGS (1)
  1. THEOPHYLLINE 200 MG [Suspect]
     Active Substance: THEOPHYLLINE ANHYDROUS
     Indication: PRODUCT USED FOR UNKNOWN INDICATION
     Dosage: 16800 MG, SINGLE
     Route: 048

REACTIONS (4)
  - Toxicity to various agents [Recovering/Resolving]
  - Overdose [Unknown]
  - Cardiac arrest [Unknown]
  - Oesophageal haemorrhage [Unknown]
